FAERS Safety Report 12572148 (Version 1)
Quarter: 2016Q3

REPORT INFORMATION
  Report Type: Spontaneous
  Country: US (occurrence: US)
  Receive Date: 20160719
  Receipt Date: 20160719
  Transmission Date: 20161109
  Serious: No
  Sender: FDA-Public Use
  Company Number: US-MALLINCKRODT-T201504347

PATIENT
  Age: 56 Year
  Sex: Female
  Weight: 38 kg

DRUGS (4)
  1. OXYCODONE/ACETAMINOPHEN [Suspect]
     Active Substance: ACETAMINOPHEN\OXYCODONE HYDROCHLORIDE
     Indication: SPINAL PAIN
     Dosage: 1 TO 2 TAB EVERY 6 HRS
     Route: 048
     Dates: start: 2012, end: 201509
  2. LOSARTAN. [Concomitant]
     Active Substance: LOSARTAN
  3. TRIAMTERENE. [Concomitant]
     Active Substance: TRIAMTERENE
  4. SIMVASTATIN. [Concomitant]
     Active Substance: SIMVASTATIN

REACTIONS (8)
  - Liver injury [Recovering/Resolving]
  - Product coating issue [Unknown]
  - Palpitations [Recovering/Resolving]
  - Tachycardia [Recovering/Resolving]
  - Agitation [Recovering/Resolving]
  - Feeling abnormal [Recovering/Resolving]
  - Intentional product misuse [Unknown]
  - Euphoric mood [Recovering/Resolving]

NARRATIVE: CASE EVENT DATE: 20150825
